FAERS Safety Report 5071417-X (Version None)
Quarter: 2006Q3

REPORT INFORMATION
  Report Type: 
  Country: None (occurrence: None)
  Receive Date: 20060804
  Receipt Date: 20060221
  Transmission Date: 20061208
  Serious: No
  Sender: FDA-Public Use
  Company Number: US-AMGEN-US169783

PATIENT
  Age: 81 Year
  Sex: Female

DRUGS (5)
  1. ARANESP [Suspect]
     Indication: ANAEMIA OF MALIGNANT DISEASE
     Dates: start: 20051201
  2. VITAMIN B-12 [Concomitant]
  3. TENORMIN [Concomitant]
  4. PAMINE [Concomitant]
  5. SYNTHROID [Concomitant]

REACTIONS (1)
  - INJECTION SITE SWELLING [None]
